FAERS Safety Report 5569992-1 (Version None)
Quarter: 2007Q4

REPORT INFORMATION
  Report Type: 
  Country: None (occurrence: None)
  Receive Date: 20071220
  Receipt Date: 20071212
  Transmission Date: 20080405
  Serious: Yes (Hospitalization)
  Sender: FDA-Public Use
  Company Number: JP-ABBOTT-07P-087-0430562-00

PATIENT
  Age: 53 Year
  Sex: Female

DRUGS (10)
  1. CLARITHROMYCIN [Suspect]
     Indication: INFECTION PROPHYLAXIS
     Dosage: NOT REPORTED
  2. HERBAL MEDICINE CONTAINING LICORICE [Suspect]
     Indication: DRUG USE FOR UNKNOWN INDICATION
  3. METHOTREXATE [Concomitant]
     Indication: RHEUMATOID ARTHRITIS
     Dosage: NOT REPORTED
  4. METHOTREXATE [Concomitant]
     Route: 048
  5. INFLIXIMAB [Concomitant]
     Indication: RHEUMATOID ARTHRITIS
     Route: 042
  6. CEFTRIAXONE SODIUM HYDRATE [Concomitant]
     Indication: PNEUMONIA
     Route: 050
  7. LEVOFLOXACIN HYDRATE [Concomitant]
     Indication: PNEUMONIA
     Dosage: NOT REPORTED
  8. CEFEPIME DIHYDROCHLORIDE HYDRATE [Concomitant]
     Indication: NEUTROPENIA
     Dosage: NOT REPORTED
  9. CEFEPIME DIHYDROCHLORIDE HYDRATE [Concomitant]
     Indication: PYREXIA
  10. HERBAL MEDICINE CONTAINING HONEY-BAKED LICORICE [Concomitant]
     Indication: DRUG USE FOR UNKNOWN INDICATION

REACTIONS (4)
  - HYPOKALAEMIA [None]
  - NEUTROPENIA [None]
  - PSEUDOALDOSTERONISM [None]
  - PYREXIA [None]
